FAERS Safety Report 7164790-X (Version None)
Quarter: 2010Q4

REPORT INFORMATION
  Report Type: 
  Country: None (occurrence: None)
  Receive Date: 20101215
  Receipt Date: 20101213
  Transmission Date: 20110411
  Serious: Yes (Death)
  Sender: FDA-Public Use
  Company Number: GR-PFIZER INC-2010170045

PATIENT
  Age: 76 Year
  Sex: Male
  Weight: 60 kg

DRUGS (7)
  1. FLUCONAZOLE [Suspect]
     Indication: ABDOMINAL INFECTION
     Dosage: 400 MG, 1X/DAY
     Route: 042
     Dates: start: 20090906, end: 20090908
  2. VANCOMYCIN [Suspect]
     Indication: ABDOMINAL INFECTION
     Dosage: 1 G, 2X/DAY
     Route: 042
     Dates: start: 20090831, end: 20090918
  3. MEROPENEM [Suspect]
     Indication: ABDOMINAL INFECTION
     Dosage: 1 G, 3X/DAY
     Route: 042
     Dates: start: 20090821, end: 20090829
  4. MEROPENEM [Suspect]
     Dosage: 1 G, 2X/DAY
     Route: 042
     Dates: start: 20090830, end: 20090908
  5. MEROPENEM [Suspect]
     Dosage: 1 G, 3X/DAY
     Route: 042
     Dates: start: 20090909, end: 20090918
  6. TEICOPLANIN [Suspect]
     Indication: ABDOMINAL INFECTION
     Dosage: 400 MG, 2X/DAY
     Route: 042
     Dates: start: 20090821, end: 20090830
  7. LEVOFLOXACIN [Suspect]
     Indication: ABDOMINAL INFECTION
     Dosage: 400 MG, 2X/DAY
     Route: 042
     Dates: start: 20090909, end: 20090910

REACTIONS (2)
  - INTESTINAL PERFORATION [None]
  - MULTI-ORGAN FAILURE [None]
